FAERS Safety Report 21420449 (Version 1)
Quarter: 2022Q4

REPORT INFORMATION
  Report Type: Spontaneous
  Country: IT (occurrence: IT)
  Receive Date: 20221007
  Receipt Date: 20221007
  Transmission Date: 20230113
  Serious: Yes (Other)
  Sender: FDA-Public Use
  Company Number: IT-Zentiva-2022-ZT-008427

PATIENT
  Age: 26 Day
  Sex: Male

DRUGS (5)
  1. AZACITIDINE [Suspect]
     Active Substance: AZACITIDINE
     Indication: Acute lymphocytic leukaemia
     Dosage: 55 MG/M2
     Route: 065
  2. AZACITIDINE [Suspect]
     Active Substance: AZACITIDINE
     Dosage: 75 MG/M2
     Route: 065
  3. AZACITIDINE [Suspect]
     Active Substance: AZACITIDINE
     Dosage: 40 MG/M2, MAINTENANCE 3 CYCLES
     Route: 065
  4. AZACITIDINE [Suspect]
     Active Substance: AZACITIDINE
     Dosage: DELAYED, 75 MG/M2
     Route: 065
  5. PREDNISONE [Suspect]
     Active Substance: PREDNISONE
     Indication: Acute lymphocytic leukaemia
     Dosage: 1 MG/M2 AT EACH CYCLE OF AZACITIDINE
     Route: 065

REACTIONS (3)
  - Gastrointestinal toxicity [Recovered/Resolved]
  - Cytopenia [Recovered/Resolved]
  - Off label use [Unknown]
